FAERS Safety Report 26071665 (Version 1)
Quarter: 2025Q4

REPORT INFORMATION
  Report Type: Spontaneous
  Country: EU (occurrence: EU)
  Receive Date: 20251120
  Receipt Date: 20251120
  Transmission Date: 20260117
  Serious: Yes (Life-Threatening, Hospitalization)
  Sender: TEVA
  Company Number: None

PATIENT
  Age: 76 Year
  Sex: Female
  Weight: 100.7 kg

DRUGS (6)
  1. CARBOPLATIN [Suspect]
     Active Substance: CARBOPLATIN
     Indication: Ovarian cancer
     Dosage: TIME INTERVAL: CYCLICAL: 11TH COURSE OF CHEMOTHERAPY; CARBOSIN TEVA
     Route: 042
     Dates: start: 20251017, end: 20251017
  2. DEXCHLORPHENIRAMINE [Concomitant]
     Active Substance: DEXCHLORPHENIRAMINE
     Indication: Chemotherapy side effect prophylaxis
     Dosage: TIME INTERVAL: TOTAL: 11TH COURSE OF CHEMOTHERAPY
     Route: 042
     Dates: start: 20251017, end: 20251017
  3. DEXAMETHASONE [Concomitant]
     Active Substance: DEXAMETHASONE
     Indication: Chemotherapy side effect prophylaxis
     Dosage: TIME INTERVAL: TOTAL: 11TH COURSE OF CHEMOTHERAPY
     Route: 042
     Dates: start: 20251017, end: 20251017
  4. ONDANSETRON [Concomitant]
     Active Substance: ONDANSETRON
     Indication: Chemotherapy side effect prophylaxis
     Dosage: TIME INTERVAL: TOTAL: 11TH COURSE OF CHEMOTHERAPY
     Route: 042
     Dates: start: 20251017, end: 20251017
  5. PACLITAXEL [Concomitant]
     Active Substance: PACLITAXEL
     Indication: Ovarian cancer
     Dosage: TIME INTERVAL: CYCLICAL: 11TH COURSE OF CHEMOTHERAPY
     Route: 042
     Dates: start: 20251017, end: 20251017
  6. CIMETIDINE [Concomitant]
     Active Substance: CIMETIDINE
     Indication: Chemotherapy side effect prophylaxis
     Dosage: TIME INTERVAL: TOTAL: 11TH COURSE OF CHEMOTHERAPY
     Route: 048
     Dates: start: 20251017, end: 20251017

REACTIONS (1)
  - Infusion related reaction [Recovered/Resolved]

NARRATIVE: CASE EVENT DATE: 20251017
